FAERS Safety Report 9466348 (Version 3)
Quarter: 2013Q4

REPORT INFORMATION
  Report Type: Spontaneous
  Country: US (occurrence: US)
  Receive Date: 20130820
  Receipt Date: 20131205
  Transmission Date: 20140711
  Serious: No
  Sender: FDA-Public Use
  Company Number: US-PFIZER INC-2013236372

PATIENT
  Age: 66 Year
  Sex: Female
  Weight: 50.34 kg

DRUGS (3)
  1. XALATAN [Suspect]
     Indication: GLAUCOMA
     Dosage: 2 GTT (AT ONE DROP IN EACH EYE), UNK
     Route: 047
  2. XALATAN [Suspect]
     Dosage: 2 GTT (AT ONE DROP IN EACH EYE), UNK
     Route: 047
  3. RESTASIS [Concomitant]
     Dosage: UNK
     Route: 047

REACTIONS (1)
  - Drug ineffective [Unknown]
